APPROVED DRUG PRODUCT: AMOXICILLIN
Active Ingredient: AMOXICILLIN
Strength: 500MG
Dosage Form/Route: TABLET;ORAL
Application: A065056 | Product #001 | TE Code: AB
Applicant: TEVA PHARMACEUTICALS USA INC
Approved: Sep 18, 2000 | RLD: No | RS: No | Type: RX